FAERS Safety Report 13035162 (Version 1)
Quarter: 2016Q4

REPORT INFORMATION
  Report Type: Spontaneous
  Country: TR (occurrence: TR)
  Receive Date: 20161216
  Receipt Date: 20161216
  Transmission Date: 20170207
  Serious: Yes (Death, Hospitalization)
  Sender: FDA-Public Use
  Company Number: TR-SA-2016SA227595

PATIENT
  Age: 14 Year
  Sex: Male
  Weight: 44 kg

DRUGS (2)
  1. COUMADIN [Suspect]
     Active Substance: WARFARIN SODIUM
     Dosage: DOSE, FREQUENCY: 1X1
     Route: 048
     Dates: start: 2013
  2. CEREZYME [Suspect]
     Active Substance: IMIGLUCERASE
     Indication: GAUCHER^S DISEASE
     Dosage: DOSE: 13 VIALS
     Route: 042
     Dates: start: 20080909

REACTIONS (4)
  - Aortic valve calcification [Unknown]
  - Myocardial infarction [Fatal]
  - Aortic calcification [Unknown]
  - Coronary artery stenosis [Unknown]

NARRATIVE: CASE EVENT DATE: 20161128
